FAERS Safety Report 8014419-3 (Version None)
Quarter: 2011Q4

REPORT INFORMATION
  Report Type: 
  Country: None (occurrence: None)
  Receive Date: 20111229
  Receipt Date: 20111222
  Transmission Date: 20120403
  Serious: Yes (Other)
  Sender: FDA-Public Use
  Company Number: PHHY2011FR112690

PATIENT
  Age: 78 Year
  Sex: Male

DRUGS (8)
  1. OXYCODONE HCL [Concomitant]
     Dosage: UNK
     Dates: start: 20110921, end: 20110926
  2. RISPERDAL [Concomitant]
     Dosage: UNK
     Dates: start: 20110921, end: 20110925
  3. RIMACTANE [Suspect]
     Indication: INFECTION
     Dosage: UNK
     Route: 042
     Dates: start: 20110901, end: 20111005
  4. NEXIUM [Concomitant]
     Dosage: UNK
  5. MORPHINE [Concomitant]
     Dosage: UNK
     Dates: start: 20110926, end: 20111003
  6. LEVOFLOXACIN [Suspect]
     Indication: INFECTION
     Dosage: UNK
     Route: 042
     Dates: start: 20110901, end: 20110930
  7. TRANXENE [Concomitant]
     Dosage: UNK
     Dates: start: 20110929, end: 20111003
  8. EQUANIL [Concomitant]
     Dosage: UNK
     Route: 030
     Dates: start: 20110926, end: 20110928

REACTIONS (3)
  - SCREAMING [None]
  - CONFUSIONAL STATE [None]
  - AGITATION [None]
